FAERS Safety Report 12285991 (Version 1)
Quarter: 2016Q2

REPORT INFORMATION
  Report Type: Spontaneous
  Country: US (occurrence: None)
  Receive Date: 20160419
  Receipt Date: 20160419
  Transmission Date: 20160815
  Serious: No
  Sender: FDA-Public Use
  Company Number: None

PATIENT
  Age: 66 Year
  Sex: Female

DRUGS (1)
  1. SUTENT [Suspect]
     Active Substance: SUNITINIB MALATE
     Indication: RENAL CANCER
     Dosage: 37.5MG/25MG  37.5MG ALTERNATING PO
     Route: 048
     Dates: start: 20151103

REACTIONS (3)
  - Lip swelling [None]
  - Oropharyngeal pain [None]
  - Fatigue [None]
